FAERS Safety Report 9444464 (Version 1)
Quarter: 2013Q3

REPORT INFORMATION
  Report Type: Spontaneous
  Country: US (occurrence: None)
  Receive Date: 20130806
  Receipt Date: 20130806
  Transmission Date: 20140515
  Serious: No
  Sender: FDA-Public Use
  Company Number: None

PATIENT
  Age: 37 Year
  Sex: Female
  Weight: 65 kg

DRUGS (1)
  1. PACLITAXEL (TAXOL) [Suspect]
     Dates: end: 20111110

REACTIONS (3)
  - Dyspnoea [None]
  - Ejection fraction decreased [None]
  - Cough [None]
